FAERS Safety Report 8083923-4 (Version None)
Quarter: 2012Q1

REPORT INFORMATION
  Report Type: 
  Country: None (occurrence: None)
  Receive Date: 20120128
  Receipt Date: 20110111
  Transmission Date: 20120608
  Serious: No
  Sender: FDA-Public Use
  Company Number: US-ABBOTT-11P-163-0697414-00

PATIENT
  Age: 68 Year
  Sex: Male

DRUGS (11)
  1. ZOCOR [Concomitant]
     Indication: BLOOD CHOLESTEROL INCREASED
     Route: 048
  2. METFFORMIN HYDROCHLORIDE [Concomitant]
     Indication: DIABETES MELLITUS
  3. METHOTREXATE [Concomitant]
     Indication: PRODUCT USED FOR UNKNOWN INDICATION
  4. FOLIC ACID [Concomitant]
     Indication: PRODUCT USED FOR UNKNOWN INDICATION
  5. FENTANYL [Concomitant]
     Indication: PAIN
     Dosage: PATCH
  6. XANAX [Concomitant]
     Indication: ANXIETY
  7. HUMIRA [Suspect]
     Indication: RHEUMATOID ARTHRITIS
     Route: 058
     Dates: start: 20101101, end: 20101223
  8. PRILOSEC [Concomitant]
     Indication: BARRETT'S OESOPHAGUS
  9. NADOLOL [Concomitant]
     Indication: CARDIAC DISORDER
  10. FISH OIL [Concomitant]
     Indication: PRODUCT USED FOR UNKNOWN INDICATION
  11. CALTRATE 600 PLUS D [Concomitant]
     Indication: PRODUCT USED FOR UNKNOWN INDICATION

REACTIONS (3)
  - LUNG INFECTION [None]
  - EYE OPERATION [None]
  - NASOPHARYNGITIS [None]
